FAERS Safety Report 7483093-7 (Version None)
Quarter: 2011Q2

REPORT INFORMATION
  Report Type: 
  Country: None (occurrence: None)
  Receive Date: 20110516
  Receipt Date: 20110503
  Transmission Date: 20111010
  Serious: Yes (Hospitalization, Other)
  Sender: FDA-Public Use
  Company Number: US-AMGEN-USASP2011019858

PATIENT
  Age: 51 Year
  Sex: Female

DRUGS (3)
  1. REMICADE [Concomitant]
  2. HUMIRA [Concomitant]
  3. ENBREL [Suspect]
     Indication: RHEUMATOID ARTHRITIS
     Dosage: 25 MG, 2 TIMES/WK
     Dates: start: 19980101

REACTIONS (12)
  - JOINT ARTHROPLASTY [None]
  - RHEUMATOID ARTHRITIS [None]
  - COLD SWEAT [None]
  - HYPOTENSION [None]
  - MASS [None]
  - TENDON RUPTURE [None]
  - FEELING COLD [None]
  - TACHYCARDIA [None]
  - STAPHYLOCOCCAL INFECTION [None]
  - FALL [None]
  - PRESYNCOPE [None]
  - LOCALISED INFECTION [None]
